FAERS Safety Report 26105537 (Version 1)
Quarter: 2025Q4

REPORT INFORMATION
  Report Type: Report from Study
  Country: US (occurrence: US)
  Receive Date: 20251201
  Receipt Date: 20251201
  Transmission Date: 20260117
  Serious: Yes (Death)
  Sender: ROCHE
  Company Number: US-ROCHE-10000442898

PATIENT
  Age: 82 Year
  Sex: Male

DRUGS (2)
  1. COLUMVI [Suspect]
     Active Substance: GLOFITAMAB-GXBM
     Indication: Burkitt^s lymphoma stage I
     Dosage: INFUSE 30MG INTRAVENOUSLY STARTING DAY 1 OF CYCLE 2 AND THEN EVERY 21 DAY(S) THEREAFTER
     Route: 042
  2. MIRTAZAPINE [Concomitant]
     Active Substance: MIRTAZAPINE
     Route: 048
     Dates: start: 20231011

REACTIONS (2)
  - Death [Fatal]
  - Off label use [Unknown]
